FAERS Safety Report 13261147 (Version 1)
Quarter: 2017Q1

REPORT INFORMATION
  Report Type: Spontaneous
  Country: IT (occurrence: IT)
  Receive Date: 20170222
  Receipt Date: 20170222
  Transmission Date: 20170428
  Serious: Yes (Other)
  Sender: FDA-Public Use
  Company Number: IT-SA-2017SA026430

PATIENT
  Age: 80 Year
  Sex: Female

DRUGS (4)
  1. POTASSIUM CANRENOATE [Concomitant]
     Active Substance: CANRENOATE POTASSIUM
  2. SIMVASTATIN ZENTIVA [Concomitant]
     Route: 048
  3. METFORMIN HYDROCHLORIDE. [Suspect]
     Active Substance: METFORMIN HYDROCHLORIDE
     Indication: TYPE 2 DIABETES MELLITUS
     Dosage: DOSE:1 UNIT(S)
     Route: 048
     Dates: start: 20160101, end: 20161228
  4. AMARYL [Suspect]
     Active Substance: GLIMEPIRIDE
     Indication: TYPE 2 DIABETES MELLITUS
     Dosage: DOSE:1 UNIT(S)
     Route: 048
     Dates: start: 20160101, end: 20161228

REACTIONS (3)
  - Hypoglycaemia [Recovering/Resolving]
  - Hemiplegia [Recovering/Resolving]
  - Aphasia [Recovering/Resolving]

NARRATIVE: CASE EVENT DATE: 20161228
